FAERS Safety Report 24242380 (Version 1)
Quarter: 2024Q3

REPORT INFORMATION
  Report Type: Spontaneous
  Country: US (occurrence: None)
  Receive Date: 20240822
  Receipt Date: 20240822
  Transmission Date: 20241016
  Serious: No
  Sender: Public
  Company Number: None

PATIENT
  Age: 56 Year
  Sex: Female
  Weight: 103.42 kg

DRUGS (1)
  1. HUMIRA [Suspect]
     Active Substance: ADALIMUMAB
     Indication: Immunology test abnormal
     Dosage: FREQUENCY : AS DIRECTED;?
     Route: 058
     Dates: start: 202407

REACTIONS (2)
  - Headache [None]
  - Nausea [None]
